FAERS Safety Report 18761023 (Version 1)
Quarter: 2021Q1

REPORT INFORMATION
  Report Type: Spontaneous
  Country: US (occurrence: US)
  Receive Date: 20210118
  Receipt Date: 20210118
  Transmission Date: 20210419
  Serious: Yes (Hospitalization)
  Sender: FDA-Public Use
  Company Number: None

PATIENT
  Age: 68 Year
  Sex: Female

DRUGS (16)
  1. BREO ELLIPTA [Concomitant]
     Active Substance: FLUTICASONE FUROATE\VILANTEROL TRIFENATATE
  2. DULOXETINE. [Concomitant]
     Active Substance: DULOXETINE
  3. VIIBRYD [Concomitant]
     Active Substance: VILAZODONE HYDROCHLORIDE
  4. BURPROPN HCL [Concomitant]
  5. VITAMIN D3 [Concomitant]
     Active Substance: CHOLECALCIFEROL
  6. FERROUS SULF [Concomitant]
     Active Substance: FERROUS SULFATE
  7. ALBUTEROL. [Concomitant]
     Active Substance: ALBUTEROL
  8. CLARINEX [Concomitant]
     Active Substance: DESLORATADINE
  9. ELMIRON [Concomitant]
     Active Substance: PENTOSAN POLYSULFATE SODIUM
  10. MAGNESIUM [Concomitant]
     Active Substance: MAGNESIUM
  11. REPATHA [Suspect]
     Active Substance: EVOLOCUMAB
     Indication: ARTERIOSCLEROSIS
     Route: 058
     Dates: start: 20201224
  12. ARIPIPRAZOLE. [Concomitant]
     Active Substance: ARIPIPRAZOLE
  13. ESOPEMRA MAG [Concomitant]
  14. METFORMIN [Concomitant]
     Active Substance: METFORMIN HYDROCHLORIDE
  15. BUSPIRONE [Concomitant]
     Active Substance: BUSPIRONE HYDROCHLORIDE
  16. QUINAPRIL. [Concomitant]
     Active Substance: QUINAPRIL

REACTIONS (2)
  - Gait disturbance [None]
  - Injection site pain [None]

NARRATIVE: CASE EVENT DATE: 20201230
